FAERS Safety Report 13623017 (Version 1)
Quarter: 2017Q2

REPORT INFORMATION
  Report Type: Spontaneous
  Country: DE (occurrence: DE)
  Receive Date: 20170607
  Receipt Date: 20170607
  Transmission Date: 20170830
  Serious: Yes (Other)
  Sender: FDA-Public Use
  Company Number: DE-TEVA-773545GER

PATIENT
  Age: 53 Year
  Sex: Male

DRUGS (11)
  1. VALPROAT [Suspect]
     Active Substance: VALPROATE SODIUM
     Dosage: 0-1800 MG/DAY
     Route: 048
     Dates: start: 20160517, end: 20160527
  2. VALPROAT [Suspect]
     Active Substance: VALPROATE SODIUM
     Route: 048
     Dates: start: 20160530, end: 20160530
  3. PANTOPRAZOL [Concomitant]
     Active Substance: PANTOPRAZOLE SODIUM
     Route: 048
     Dates: start: 20160520
  4. RAMIPRIL. [Concomitant]
     Active Substance: RAMIPRIL
     Route: 048
     Dates: start: 20160520
  5. LORAZEPAM. [Concomitant]
     Active Substance: LORAZEPAM
     Route: 048
     Dates: start: 20160520, end: 20160526
  6. QUETIAPIN [Concomitant]
     Active Substance: QUETIAPINE
     Route: 048
     Dates: start: 20160520
  7. VALPROAT [Suspect]
     Active Substance: VALPROATE SODIUM
     Route: 048
     Dates: start: 20160528, end: 20160528
  8. VALPROAT [Suspect]
     Active Substance: VALPROATE SODIUM
     Route: 048
     Dates: start: 20160531
  9. TAZOBAC 12/1,5 MG [Concomitant]
     Route: 048
     Dates: start: 20160520, end: 20160603
  10. VALPROAT [Suspect]
     Active Substance: VALPROATE SODIUM
     Route: 048
     Dates: start: 20160529, end: 20160529
  11. LORAZEPAM. [Concomitant]
     Active Substance: LORAZEPAM
     Route: 048
     Dates: start: 20160527, end: 20160603

REACTIONS (5)
  - Encephalopathy [Recovered/Resolved]
  - Disturbance in attention [Recovered/Resolved]
  - General physical health deterioration [Recovered/Resolved]
  - Dysarthria [Recovered/Resolved]
  - Nystagmus [Recovered/Resolved]

NARRATIVE: CASE EVENT DATE: 20160520
